FAERS Safety Report 4833725-4 (Version None)
Quarter: 2005Q4

REPORT INFORMATION
  Report Type: 
  Country: None (occurrence: None)
  Receive Date: 20051114
  Receipt Date: 20051102
  Transmission Date: 20060501
  Serious: Yes (Hospitalization, Other)
  Sender: FDA-Public Use
  Company Number: 2005-08-2226

PATIENT
  Age: 39 Year
  Sex: Female

DRUGS (2)
  1. TEMODAR [Suspect]
     Indication: ANAPLASTIC ASTROCYTOMA
     Dosage: 140 MG QD ORAL
     Route: 048
     Dates: end: 20050901
  2. RADIATION THERAPY [Concomitant]

REACTIONS (4)
  - BACK PAIN [None]
  - MENINGITIS ASEPTIC [None]
  - PAIN IN EXTREMITY [None]
  - PHOTOPHOBIA [None]
